FAERS Safety Report 10085951 (Version 5)
Quarter: 2022Q2

REPORT INFORMATION
  Report Type: Report from Study
  Country: US (occurrence: None)
  Receive Date: 20140418
  Receipt Date: 20220411
  Transmission Date: 20220721
  Serious: Yes (Hospitalization)
  Sender: FDA-Public Use
  Company Number: US-ROCHE-1110133

PATIENT
  Age: 76 Year
  Sex: Female
  Weight: 69.916 kg

DRUGS (21)
  1. PERTUZUMAB [Suspect]
     Active Substance: PERTUZUMAB
     Indication: Breast cancer
     Dosage: LOADING DOSE
     Route: 042
     Dates: start: 20120711, end: 20120711
  2. PERTUZUMAB [Suspect]
     Active Substance: PERTUZUMAB
     Dosage: MAINTENANCE DOSE, MOST RECENT DOSE PRIOR TO SAE 01/AUG/2012
     Route: 042
     Dates: end: 20120822
  3. PERTUZUMAB [Suspect]
     Active Substance: PERTUZUMAB
     Dosage: MAINTENANCE DOSE
     Route: 042
     Dates: start: 20120926
  4. TRASTUZUMAB [Suspect]
     Active Substance: TRASTUZUMAB
     Indication: Breast cancer
     Dosage: LOADING DOSE
     Route: 041
     Dates: start: 20120711, end: 20120711
  5. TRASTUZUMAB [Suspect]
     Active Substance: TRASTUZUMAB
     Dosage: MAINTENANCE DOSE, MOST RECENT DOSE PRIOR TO SAE 01/AUG/2012
     Route: 041
     Dates: end: 20120822
  6. TRASTUZUMAB [Suspect]
     Active Substance: TRASTUZUMAB
     Dosage: MAINTENANCE DOSE
     Route: 041
     Dates: start: 20120926
  7. CARBOPLATIN [Suspect]
     Active Substance: CARBOPLATIN
     Indication: Breast cancer
     Dosage: MOST RECENT DOSE PRIOR TO SAE 01/AUG/2012 AND TEMPORARILY INTERUPPTED ON 22/AUG/2012.
     Route: 042
     Dates: start: 20120711, end: 20120920
  8. TAXOTERE [Suspect]
     Active Substance: DOCETAXEL
     Indication: Breast cancer
     Dosage: MOST RECENT DOSE PRIOR TO SAE 01/AUG/2012, AND TEMPORARILY INTERUPPTED ON 22/AUG/2012.
     Route: 042
     Dates: start: 20120711, end: 20120920
  9. CLONIDINE [Concomitant]
     Active Substance: CLONIDINE
     Dates: start: 201010
  10. ALLOPURINOL [Concomitant]
     Active Substance: ALLOPURINOL
     Dates: start: 200802
  11. ASPIRIN [Concomitant]
     Active Substance: ASPIRIN
     Dates: start: 201010
  12. LISINOPRIL [Concomitant]
     Active Substance: LISINOPRIL
     Dates: start: 201103
  13. VOLTAREN [Concomitant]
     Active Substance: DICLOFENAC SODIUM
     Dosage: PRN
     Dates: start: 201001
  14. MAGNESIUM OXIDE [Concomitant]
     Active Substance: MAGNESIUM OXIDE
     Dates: start: 201010
  15. PRILOSEC [Concomitant]
     Active Substance: OMEPRAZOLE MAGNESIUM
     Dates: start: 20120802
  16. PHENERGAN [Concomitant]
     Active Substance: PROMETHAZINE HYDROCHLORIDE
     Dosage: PRN
     Route: 048
     Dates: start: 201103
  17. LOMOTIL [Concomitant]
     Active Substance: ATROPINE SULFATE\DIPHENOXYLATE HYDROCHLORIDE
     Dosage: PRN
     Route: 048
     Dates: start: 20120718, end: 20120920
  18. LORTAB [Concomitant]
     Active Substance: ACETAMINOPHEN\HYDROCODONE BITARTRATE
     Dosage: 5/500 MG Q4-6 PRN
     Dates: start: 20120802, end: 20120920
  19. CARVEDILOL [Concomitant]
     Active Substance: CARVEDILOL
     Dates: start: 201103
  20. BUMEX [Concomitant]
     Active Substance: BUMETANIDE
  21. OMEPRAZOLE [Concomitant]
     Active Substance: OMEPRAZOLE
     Dates: start: 20120802, end: 20120920

REACTIONS (1)
  - Cellulitis [Recovered/Resolved]

NARRATIVE: CASE EVENT DATE: 20120818
